FAERS Safety Report 5789148-7 (Version None)
Quarter: 2008Q2

REPORT INFORMATION
  Report Type: 
  Country: None (occurrence: None)
  Receive Date: 20080626
  Receipt Date: 20080617
  Transmission Date: 20081010
  Serious: Yes (Hospitalization)
  Sender: FDA-Public Use
  Company Number: US-ELI_LILLY_AND_COMPANY-US200806003962

PATIENT
  Age: 79 Year
  Sex: Male

DRUGS (15)
  1. CYMBALTA [Suspect]
     Indication: DEPRESSION
     Dosage: 30 MG, UNK
  2. CYMBALTA [Suspect]
     Dosage: 60 MG, DAILY (1/D)
  3. ALPRAZOLAM [Concomitant]
  4. CLOPIDOGREL [Concomitant]
  5. EPOETIN ALFA [Concomitant]
  6. NITROGLYCERIN [Concomitant]
  7. ATORVASTATIN [Concomitant]
  8. METOPROLOL [Concomitant]
  9. ZOLPIDEM [Concomitant]
  10. AMIODARONE HCL [Concomitant]
  11. EZETIMIBE [Concomitant]
  12. ASPIRIN [Concomitant]
  13. SEVELAMER [Concomitant]
  14. ISOSORBIDE MONONITRATE [Concomitant]
  15. PANTOPRAZOLE SODIUM [Concomitant]

REACTIONS (2)
  - CHEST PAIN [None]
  - STENT PLACEMENT [None]
